FAERS Safety Report 5728139-9 (Version None)
Quarter: 2008Q2

REPORT INFORMATION
  Report Type: 
  Country: None (occurrence: None)
  Receive Date: 20080505
  Receipt Date: 20080428
  Transmission Date: 20081010
  Serious: Yes (Hospitalization, Other)
  Sender: FDA-Public Use
  Company Number: US-MERCK-0709USA00200

PATIENT
  Age: 63 Year
  Sex: Female
  Weight: 48 kg

DRUGS (3)
  1. FOSAMAX [Suspect]
     Indication: OSTEOPOROSIS
     Route: 048
     Dates: start: 19960101, end: 20060101
  2. FOSAMAX [Suspect]
     Indication: RHEUMATOID ARTHRITIS
     Route: 048
     Dates: start: 19960101, end: 20060101
  3. SALAGEN [Concomitant]
     Route: 065
     Dates: start: 19980101

REACTIONS (14)
  - ANXIETY [None]
  - CATARACT [None]
  - CHOLECYSTITIS INFECTIVE [None]
  - DEPRESSION [None]
  - HAEMORRHOIDS [None]
  - HERPES VIRUS INFECTION [None]
  - LYMPHADENITIS [None]
  - LYMPHADENOPATHY [None]
  - ORAL CANDIDIASIS [None]
  - OSTEOMYELITIS [None]
  - OSTEONECROSIS [None]
  - RECTAL HAEMORRHAGE [None]
  - RENAL FAILURE [None]
  - URINARY TRACT INFECTION [None]
